FAERS Safety Report 22358103 (Version 2)
Quarter: 2023Q2

REPORT INFORMATION
  Report Type: Report from Study
  Country: ES (occurrence: ES)
  Receive Date: 20230524
  Receipt Date: 20230607
  Transmission Date: 20230721
  Serious: Yes (Other)
  Sender: FDA-Public Use
  Company Number: ES-INCYTE CORPORATION-2023IN002692

PATIENT

DRUGS (13)
  1. TAFASITAMAB [Suspect]
     Active Substance: TAFASITAMAB
     Indication: Diffuse large B-cell lymphoma
     Dosage: 576 MILLIGRAM
     Route: 042
     Dates: start: 20220916, end: 20221014
  2. LENALIDOMIDE [Suspect]
     Active Substance: LENALIDOMIDE
     Indication: Diffuse large B-cell lymphoma
     Dosage: UNK
     Route: 042
     Dates: start: 20220916, end: 20221014
  3. LENALIDOMIDE [Suspect]
     Active Substance: LENALIDOMIDE
     Dosage: 10 MILLIGRAM, EACH 2 DAYS
     Route: 048
     Dates: start: 20221014, end: 20221209
  4. ACYCLOVIR [Concomitant]
     Active Substance: ACYCLOVIR
     Indication: Prophylaxis
     Dosage: 400 MILLIGRAM, QD
     Route: 048
     Dates: start: 20220301
  5. CALCIFEDIOL [Concomitant]
     Active Substance: CALCIFEDIOL
     Indication: Product used for unknown indication
     Dosage: 0.266 MONTHLY
     Route: 065
     Dates: start: 20210301
  6. JENTADUETO [Concomitant]
     Active Substance: LINAGLIPTIN\METFORMIN HYDROCHLORIDE
     Indication: Product used for unknown indication
     Dosage: 25/850 DAILY
     Route: 065
     Dates: start: 20200624
  7. EZETIMIBE\ROSUVASTATIN ZINC [Concomitant]
     Active Substance: EZETIMIBE\ROSUVASTATIN ZINC
     Indication: Product used for unknown indication
     Dosage: 10/10 DAILY
     Route: 065
     Dates: start: 20200525
  8. TRAZODONE [Concomitant]
     Active Substance: TRAZODONE HYDROCHLORIDE
     Indication: Product used for unknown indication
     Dosage: 100 MILLIGRAM
     Route: 065
     Dates: start: 20181113
  9. PANPRAZOL [Concomitant]
     Indication: Product used for unknown indication
     Dosage: 40 MILLIGRAM, QD
     Route: 048
     Dates: start: 20181113
  10. ACENOCOUMAROL [Concomitant]
     Active Substance: ACENOCOUMAROL
     Indication: Product used for unknown indication
     Dosage: UNK
     Route: 065
     Dates: start: 20190820
  11. ENALAPRIL [Concomitant]
     Active Substance: ENALAPRIL
     Indication: Product used for unknown indication
     Dosage: 2.5 MILLIGRAM, QD
     Route: 048
     Dates: start: 20200217
  12. ATENOLOL [Concomitant]
     Active Substance: ATENOLOL
     Indication: Product used for unknown indication
     Dosage: 12.5 MILLIGRAM, QD
     Route: 048
     Dates: start: 20140228
  13. REPAGLINIDE [Concomitant]
     Active Substance: REPAGLINIDE
     Indication: Product used for unknown indication
     Dosage: 0.5 MILLIGRAM, QD
     Route: 048
     Dates: start: 20181113

REACTIONS (2)
  - Cellulitis [Recovered/Resolved]
  - Chronic kidney disease [Recovered/Resolved]

NARRATIVE: CASE EVENT DATE: 20221011
